FAERS Safety Report 6180217-9 (Version None)
Quarter: 2009Q2

REPORT INFORMATION
  Report Type: 
  Country: None (occurrence: None)
  Receive Date: 20090505
  Receipt Date: 20090420
  Transmission Date: 20091009
  Serious: Yes (Life-Threatening, Hospitalization)
  Sender: FDA-Public Use
  Company Number: JP-AMGEN-US342866

PATIENT
  Sex: Female

DRUGS (16)
  1. ENBREL [Suspect]
     Indication: RHEUMATOID ARTHRITIS
     Route: 058
     Dates: start: 20060413, end: 20081213
  2. METOLATE [Suspect]
     Indication: RHEUMATOID ARTHRITIS
     Route: 048
     Dates: start: 20050914, end: 20090311
  3. METOLATE [Suspect]
     Route: 048
     Dates: start: 20060402
  4. ISCOTIN [Concomitant]
     Indication: ANTIBIOTIC PROPHYLAXIS
     Route: 048
     Dates: start: 20060310, end: 20070703
  5. ANPLAG [Concomitant]
     Indication: ARTERIAL OCCLUSIVE DISEASE
     Dates: start: 20051109, end: 20060621
  6. PREDONINE [Concomitant]
     Indication: RHEUMATOID ARTHRITIS
     Route: 048
     Dates: start: 20040526, end: 20061011
  7. PREDONINE [Concomitant]
     Route: 048
     Dates: start: 20061012, end: 20061220
  8. PREDONINE [Concomitant]
     Route: 048
     Dates: start: 20061221, end: 20070125
  9. ROCALTROL [Concomitant]
     Indication: OSTEOPOROSIS
     Route: 048
     Dates: start: 20031210, end: 20060719
  10. ALTAT [Concomitant]
     Indication: GASTROINTESTINAL DISORDER
     Route: 048
     Dates: start: 20070325
  11. MUCOSTA [Concomitant]
     Indication: GASTROINTESTINAL DISORDER
     Route: 048
     Dates: start: 20030916, end: 20070322
  12. FOLIAMIN [Concomitant]
     Indication: PROPHYLAXIS
     Route: 048
     Dates: start: 20050914, end: 20090311
  13. LENDORMIN [Concomitant]
     Indication: INSOMNIA
     Route: 048
     Dates: start: 20050511, end: 20060831
  14. MOBIC [Concomitant]
     Indication: RHEUMATOID ARTHRITIS
     Route: 048
     Dates: start: 20070323
  15. METHOTREXATE [Concomitant]
     Indication: RHEUMATOID ARTHRITIS
     Dosage: INCREASED TO 8 MG /WEEK
     Route: 048
     Dates: start: 20050706
  16. CLINORIL [Concomitant]
     Indication: RHEUMATOID ARTHRITIS
     Route: 048
     Dates: start: 20031001, end: 20070322

REACTIONS (2)
  - HEPATIC ENZYME INCREASED [None]
  - TUBERCULOSIS OF GENITOURINARY SYSTEM [None]
